FAERS Safety Report 17481639 (Version 1)
Quarter: 2020Q1

REPORT INFORMATION
  Report Type: Spontaneous
  Country: UA (occurrence: UA)
  Receive Date: 20200302
  Receipt Date: 20200302
  Transmission Date: 20200409
  Serious: Yes (Hospitalization)
  Sender: FDA-Public Use
  Company Number: UA-TEVA-2020-UA-1193242

PATIENT
  Age: 38 Year
  Sex: Male

DRUGS (2)
  1. EQUORAL [Suspect]
     Active Substance: CYCLOSPORINE
     Indication: PROPHYLAXIS AGAINST TRANSPLANT REJECTION
     Route: 048
  2. IMUFET [Concomitant]
     Route: 048
     Dates: start: 20120405

REACTIONS (6)
  - Gouty tophus [Recovered/Resolved]
  - Gouty arthritis [Recovered/Resolved]
  - Gout [Recovered/Resolved]
  - Fistula [Recovered/Resolved]
  - Synovitis [Recovered/Resolved]
  - Blood uric acid abnormal [Recovered/Resolved]

NARRATIVE: CASE EVENT DATE: 20121102
